FAERS Safety Report 6445193-X (Version None)
Quarter: 2009Q4

REPORT INFORMATION
  Report Type: 
  Country: None (occurrence: None)
  Receive Date: 20091118
  Receipt Date: 20090323
  Transmission Date: 20100525
  Serious: No
  Sender: FDA-Public Use
  Company Number: US-BRISTOL-MYERS SQUIBB COMPANY-14542690

PATIENT
  Sex: Male

DRUGS (2)
  1. GLUCOPHAGE [Suspect]
     Dosage: DOSE REDUCED TO 500MG/DAY TAKEN 5 YEARS AGO
  2. METFORMIN HCL [Suspect]
     Dosage: TAKEN 2-3 MONTHS AGO

REACTIONS (3)
  - ANAL FISSURE [None]
  - CONSTIPATION [None]
  - WEIGHT DECREASED [None]
